FAERS Safety Report 11188864 (Version 1)
Quarter: 2015Q2

REPORT INFORMATION
  Report Type: Spontaneous
  Country: AT (occurrence: AT)
  Receive Date: 20150615
  Receipt Date: 20150615
  Transmission Date: 20150821
  Serious: Yes (Life-Threatening, Other)
  Sender: FDA-Public Use
  Company Number: AT-SUN PHARMACEUTICAL INDUSTRIES LTD-2015R1-98877

PATIENT
  Age: 25 Year
  Sex: Female

DRUGS (1)
  1. FUROSEMIDE. [Suspect]
     Active Substance: FUROSEMIDE
     Indication: PRODUCT USED FOR UNKNOWN INDICATION
     Dosage: UNK
     Route: 065

REACTIONS (8)
  - Migraine [Unknown]
  - Bulimia nervosa [Unknown]
  - Hypokalaemia [Unknown]
  - Sudden cardiac death [Unknown]
  - Rhabdomyolysis [Unknown]
  - Seizure [Unknown]
  - Renal abscess [Unknown]
  - Drug abuse [Unknown]
